FAERS Safety Report 21349867 (Version 1)
Quarter: 2022Q3

REPORT INFORMATION
  Report Type: Other
  Country: CN (occurrence: CN)
  Receive Date: 20220919
  Receipt Date: 20220919
  Transmission Date: 20221027
  Serious: Yes (Death)
  Sender: FDA-Public Use
  Company Number: CN-ROCHE-2515241

PATIENT
  Age: 50 Year
  Sex: Female
  Weight: 63 kg

DRUGS (1)
  1. AVASTIN [Suspect]
     Active Substance: BEVACIZUMAB
     Indication: Rectal cancer
     Dosage: 100 MG
     Route: 041
     Dates: start: 20170630

REACTIONS (7)
  - Abdominal pain [Unknown]
  - Pleural effusion [Not Recovered/Not Resolved]
  - Lung neoplasm [Not Recovered/Not Resolved]
  - Lymphadenopathy mediastinal [Not Recovered/Not Resolved]
  - Pulmonary mass [Unknown]
  - Lung disorder [Unknown]
  - Disease progression [Fatal]

NARRATIVE: CASE EVENT DATE: 20200101
